FAERS Safety Report 24685673 (Version 1)
Quarter: 2024Q4

REPORT INFORMATION
  Report Type: Spontaneous
  Country: CN (occurrence: CN)
  Receive Date: 20241202
  Receipt Date: 20241202
  Transmission Date: 20250115
  Serious: Yes (Death, Other)
  Sender: ASTELLAS
  Company Number: CN-ASTELLAS-2024-AER-022376

PATIENT
  Age: 66 Year
  Sex: Male

DRUGS (1)
  1. ISAVUCONAZONIUM SULFATE [Suspect]
     Active Substance: ISAVUCONAZONIUM SULFATE
     Indication: Pneumonia
     Dosage: UNKNOWN DOSE AND FREQUENCY
     Route: 042
     Dates: start: 20241116, end: 20241116

REACTIONS (4)
  - Death [Fatal]
  - Acute kidney injury [Unknown]
  - Anuria [Unknown]
  - Oxygen saturation decreased [Unknown]
